FAERS Safety Report 6872905-3 (Version None)
Quarter: 2010Q3

REPORT INFORMATION
  Report Type: 
  Country: None (occurrence: None)
  Receive Date: 20100723
  Receipt Date: 20081104
  Transmission Date: 20110219
  Serious: No
  Sender: FDA-Public Use
  Company Number: US-PFIZER INC-2008097810

PATIENT
  Age: 64 Year
  Sex: Female

DRUGS (3)
  1. CHANTIX [Suspect]
  2. ZOCOR [Concomitant]
  3. VITAMIN D [Concomitant]

REACTIONS (1)
  - NIGHTMARE [None]
